FAERS Safety Report 5953569-X (Version None)
Quarter: 2008Q4

REPORT INFORMATION
  Report Type: 
  Country: None (occurrence: None)
  Receive Date: 20081114
  Receipt Date: 20081110
  Transmission Date: 20090506
  Serious: Yes (Congenital Anomaly)
  Sender: FDA-Public Use
  Company Number: A0679404A

PATIENT

DRUGS (1)
  1. PAXIL CR [Suspect]
     Indication: PANIC ATTACK
     Dosage: 25MG UNKNOWN

REACTIONS (5)
  - ASTHMA [None]
  - CARDIAC DISORDER [None]
  - CARDIAC MURMUR [None]
  - CONGENITAL ANOMALY [None]
  - DRUG EXPOSURE DURING PREGNANCY [None]
